FAERS Safety Report 7894155-4 (Version None)
Quarter: 2011Q4

REPORT INFORMATION
  Report Type: 
  Country: None (occurrence: None)
  Receive Date: 20111104
  Receipt Date: 20111031
  Transmission Date: 20120403
  Serious: Yes (Other)
  Sender: FDA-Public Use
  Company Number: US-PFIZER INC-2011245517

PATIENT
  Sex: Male
  Weight: 73.469 kg

DRUGS (3)
  1. PRISTIQ [Suspect]
     Indication: PANIC ATTACK
     Dosage: 50 MG
     Route: 048
     Dates: start: 20110101, end: 20111001
  2. CLONAZEPAM [Concomitant]
     Indication: ANXIETY
     Dosage: 0.5 MG, AS NEEDED
     Route: 048
  3. WELLBUTRIN [Concomitant]
     Indication: DEPRESSION
     Dosage: UNK
     Route: 048

REACTIONS (2)
  - PANIC ATTACK [None]
  - MALAISE [None]
